FAERS Safety Report 4412467-3 (Version None)
Quarter: 2004Q2

REPORT INFORMATION
  Report Type: 
  Country: None (occurrence: None)
  Receive Date: 20040630
  Receipt Date: 20040409
  Transmission Date: 20050107
  Serious: No
  Sender: FDA-Public Use
  Company Number: 04P-163-0256760-00

PATIENT
  Age: 15 Year
  Sex: Male
  Weight: 57.1532 kg

DRUGS (2)
  1. HUMIRA [Suspect]
     Indication: RHEUMATOID ARTHRITIS
     Dosage: 40 MG, 1 IN 2 WK, SUBCUTANEOUS
     Route: 058
     Dates: start: 20040301
  2. ROFECOXIB [Concomitant]

REACTIONS (4)
  - BLOOD ALBUMIN DECREASED [None]
  - INJECTION SITE BURNING [None]
  - OESOPHAGEAL INFECTION [None]
  - WHITE BLOOD CELL COUNT DECREASED [None]
